FAERS Safety Report 12253291 (Version 2)
Quarter: 2016Q4

REPORT INFORMATION
  Report Type: Spontaneous
  Country: US (occurrence: US)
  Receive Date: 20160411
  Receipt Date: 20161117
  Transmission Date: 20170207
  Serious: Yes (Other)
  Sender: FDA-Public Use
  Company Number: US-ELI_LILLY_AND_COMPANY-US201604000385

PATIENT
  Sex: Female
  Weight: 95 kg

DRUGS (2)
  1. CYMBALTA [Suspect]
     Active Substance: DULOXETINE HYDROCHLORIDE
     Indication: PAIN
     Dosage: 60 MG, QD
     Route: 048
     Dates: end: 20150226
  2. CYMBALTA [Suspect]
     Active Substance: DULOXETINE HYDROCHLORIDE
     Indication: DEPRESSION

REACTIONS (18)
  - Mood swings [Unknown]
  - Depression [Unknown]
  - Paraesthesia [Unknown]
  - Fatigue [Unknown]
  - Loss of libido [Unknown]
  - Sleep disorder [Unknown]
  - Amnesia [Unknown]
  - Insomnia [Unknown]
  - Vertigo [Unknown]
  - Confusional state [Unknown]
  - Nightmare [Unknown]
  - Drug withdrawal syndrome [Unknown]
  - Irritability [Unknown]
  - Tinnitus [Unknown]
  - Agitation [Unknown]
  - Anxiety [Unknown]
  - Dizziness [Unknown]
  - Dysphoria [Unknown]
